FAERS Safety Report 4801199-5 (Version None)
Quarter: 2005Q4

REPORT INFORMATION
  Report Type: 
  Country: None (occurrence: None)
  Receive Date: 20051011
  Receipt Date: 20050929
  Transmission Date: 20060501
  Serious: Yes (Death)
  Sender: FDA-Public Use
  Company Number: 10056

PATIENT
  Age: 80 Year
  Sex: Male

DRUGS (6)
  1. DOXORUBICIN HCL [Suspect]
     Dosage: 88 MG  IV
     Route: 042
     Dates: start: 20040706, end: 20040819
  2. VINCRISTINE [Suspect]
     Dosage: 1 MG IV
     Route: 042
     Dates: start: 20040706, end: 20040819
  3. CYCLOPHOSPHAMIDE [Suspect]
     Dosage: 880 MG  IV
     Route: 042
     Dates: start: 20040706, end: 20040706
  4. MABTHERA [Suspect]
     Dosage: 660 MG IV
     Route: 042
     Dates: start: 20040706, end: 20040819
  5. FILGRASTIM [Concomitant]
  6. PREDNISONE TAB [Concomitant]

REACTIONS (1)
  - NEUTROPENIC SEPSIS [None]
